FAERS Safety Report 12236929 (Version 1)
Quarter: 2016Q2

REPORT INFORMATION
  Report Type: Spontaneous
  Country: GB (occurrence: GB)
  Receive Date: 20160405
  Receipt Date: 20160405
  Transmission Date: 20160815
  Serious: Yes (Hospitalization, Other)
  Sender: FDA-Public Use
  Company Number: GB-ACCORD-039406

PATIENT
  Age: 56 Year
  Sex: Female
  Weight: 105 kg

DRUGS (14)
  1. DOXAZOSIN/DOXAZOSIN MESILATE [Concomitant]
     Dates: start: 20160208, end: 20160307
  2. ORLISTAT [Concomitant]
     Active Substance: ORLISTAT
     Dates: start: 20160121
  3. METFORMIN [Concomitant]
     Active Substance: METFORMIN HYDROCHLORIDE
     Dosage: WITH MEALS.
     Dates: start: 20151012
  4. AMLODIPINE [Suspect]
     Active Substance: AMLODIPINE BESYLATE
     Indication: PRODUCT USED FOR UNKNOWN INDICATION
     Dates: start: 20151012
  5. ACETYLSALICYLIC ACID [Concomitant]
     Active Substance: ASPIRIN
     Dates: start: 20151012
  6. CANDESARTAN/CANDESARTAN CILEXETIL [Concomitant]
     Dates: start: 20151012
  7. OMEPRAZOLE. [Concomitant]
     Active Substance: OMEPRAZOLE
     Dates: start: 20160107
  8. SPIRONOLACTONE. [Concomitant]
     Active Substance: SPIRONOLACTONE
     Dosage: IN THE MORNING
     Dates: start: 20151217, end: 20160229
  9. IVABRADINE/IVABRADINE HYDROCHLORIDE [Suspect]
     Active Substance: IVABRADINE HYDROCHLORIDE
     Indication: PRODUCT USED FOR UNKNOWN INDICATION
     Dates: start: 20160229
  10. FUROSEMIDE. [Concomitant]
     Active Substance: FUROSEMIDE
     Dosage: EACH MORNING
     Dates: start: 20160107, end: 20160229
  11. ISOSORBIDE. [Concomitant]
     Active Substance: ISOSORBIDE
     Dates: start: 20151012
  12. COLECALCIFEROL [Concomitant]
     Active Substance: CHOLECALCIFEROL
     Dosage: TAKE ONE TABLET MONDAYS AND THURSDAYS FOR 7 WEEKS
     Dates: start: 20160107, end: 20160109
  13. ATORVASTATIN/ATORVASTATIN CALCIUM [Concomitant]
     Dates: start: 20151012
  14. DESUNIN [Concomitant]
     Active Substance: CHOLECALCIFEROL
     Dates: start: 20160208

REACTIONS (4)
  - Swelling face [Unknown]
  - Urticaria [Unknown]
  - Circumoral oedema [Unknown]
  - Periorbital oedema [Unknown]

NARRATIVE: CASE EVENT DATE: 20160317
